FAERS Safety Report 8377060-9 (Version None)
Quarter: 2012Q2

REPORT INFORMATION
  Report Type: 
  Country: None (occurrence: None)
  Receive Date: 20120522
  Receipt Date: 20120514
  Transmission Date: 20120825
  Serious: Yes (Hospitalization)
  Sender: FDA-Public Use
  Company Number: IT-ROCHE-1070171

PATIENT
  Sex: Male

DRUGS (4)
  1. PREDNISONE TAB [Concomitant]
  2. XOLAIR [Suspect]
     Indication: ASTHMA
     Route: 058
     Dates: start: 20111222
  3. SINESTIC [Concomitant]
  4. EBASTINE [Concomitant]

REACTIONS (1)
  - BRONCHIOLITIS [None]
